FAERS Safety Report 6639082-5 (Version None)
Quarter: 2010Q1

REPORT INFORMATION
  Report Type: 
  Country: None (occurrence: None)
  Receive Date: 20100317
  Receipt Date: 20100308
  Transmission Date: 20100710
  Serious: Yes (Disabling)
  Sender: FDA-Public Use
  Company Number: PT-ASTRAZENECA-2010SE10733

PATIENT
  Age: 27555 Day
  Sex: Male

DRUGS (4)
  1. NEXIUM [Suspect]
     Indication: DYSPHAGIA
     Route: 048
     Dates: start: 20100109
  2. TRIMETAZIDINE DIHYDROCHLORIDE [Concomitant]
     Route: 048
     Dates: start: 20030101
  3. LOSARTAN POTASSIUM [Concomitant]
     Indication: HYPERTENSION
     Route: 048
     Dates: start: 20030101
  4. VINPOCETINE [Concomitant]
     Route: 048
     Dates: start: 20030101

REACTIONS (4)
  - INSOMNIA [None]
  - MUSCULAR WEAKNESS [None]
  - MYALGIA [None]
  - OEDEMA [None]
